FAERS Safety Report 8811525 (Version 1)
Quarter: 2012Q4

REPORT INFORMATION
  Report Type: 
  Country: GB (occurrence: GB)
  Receive Date: 20120927
  Receipt Date: 20120927
  Transmission Date: 20130627
  Serious: Yes (Other)
  Sender: FDA-Public Use
  Company Number: GB-JNJFOC-20120908999

PATIENT
  Age: 11 Year
  Sex: Male
  Weight: 30.8 kg

DRUGS (2)
  1. HALOPERIDOL [Suspect]
     Indication: PRODUCT USED FOR UNKNOWN INDICATION
     Route: 048
     Dates: start: 20120904, end: 20120907
  2. HALOPERIDOL [Suspect]
     Indication: TOURETTE^S DISORDER
     Route: 048
     Dates: start: 20120904, end: 20120907

REACTIONS (2)
  - Oculogyric crisis [Recovered/Resolved]
  - Eye movement disorder [Recovered/Resolved]
